FAERS Safety Report 19042627 (Version 1)
Quarter: 2021Q1

REPORT INFORMATION
  Report Type: Spontaneous
  Country: US (occurrence: US)
  Receive Date: 20210322
  Receipt Date: 20210322
  Transmission Date: 20210420
  Serious: Yes (Hospitalization)
  Sender: FDA-Public Use
  Company Number: None

PATIENT
  Sex: Female

DRUGS (24)
  1. BELBUCA MIS [Concomitant]
  2. COLESEVELAM [Concomitant]
     Active Substance: COLESEVELAM
  3. LACTULOSE. [Concomitant]
     Active Substance: LACTULOSE
  4. CLINDAMYCIN. [Concomitant]
     Active Substance: CLINDAMYCIN
  5. DEXILANT [Concomitant]
     Active Substance: DEXLANSOPRAZOLE
  6. FUROSEMIDE. [Concomitant]
     Active Substance: FUROSEMIDE
  7. VITAMIN D [Concomitant]
     Active Substance: VITAMIN D NOS
  8. CLONAZEPAM. [Concomitant]
     Active Substance: CLONAZEPAM
  9. FOLIC ACID. [Concomitant]
     Active Substance: FOLIC ACID
  10. LEVOCARNITIN [Concomitant]
  11. LINZESS [Concomitant]
     Active Substance: LINACLOTIDE
  12. MELATONIN [Concomitant]
     Active Substance: MELATONIN
  13. METHOTREXATE. [Concomitant]
     Active Substance: METHOTREXATE
  14. MONTELUKAST [Concomitant]
     Active Substance: MONTELUKAST SODIUM
  15. VALACYCLOVIR [Concomitant]
     Active Substance: VALACYCLOVIR HYDROCHLORIDE
  16. XARELTO [Concomitant]
     Active Substance: RIVAROXABAN
  17. CYANOCOBALAM [Concomitant]
     Active Substance: CYANOCOBALAMIN
  18. METHYLPRED [Concomitant]
     Active Substance: METHYLPREDNISOLONE
  19. BENLYSTA [Suspect]
     Active Substance: BELIMUMAB
     Indication: SYSTEMIC LUPUS ERYTHEMATOSUS
     Route: 058
     Dates: start: 20210221
  20. CLOZAPINE. [Concomitant]
     Active Substance: CLOZAPINE
  21. CYCLOBENZAPR [Concomitant]
     Active Substance: CYCLOBENZAPRINE
  22. HYDROXYCHLOR [Concomitant]
     Active Substance: HYDROXYCHLOROQUINE
  23. MEMANTINE. [Concomitant]
     Active Substance: MEMANTINE
  24. SERTRALINE [Concomitant]
     Active Substance: SERTRALINE HYDROCHLORIDE

REACTIONS (2)
  - Gastric disorder [None]
  - Condition aggravated [None]
